FAERS Safety Report 6243362-5 (Version None)
Quarter: 2009Q2

REPORT INFORMATION
  Report Type: 
  Country: None (occurrence: None)
  Receive Date: 20090624
  Receipt Date: 20090619
  Transmission Date: 20091009
  Serious: Yes (Death, Hospitalization)
  Sender: FDA-Public Use
  Company Number: US-CELGENEUS-163-C5013-07110144

PATIENT
  Sex: Female
  Weight: 59.928 kg

DRUGS (17)
  1. CC-5013 [Suspect]
     Route: 048
     Dates: start: 20071016, end: 20071101
  2. METFORMIN [Concomitant]
     Route: 065
  3. GLIPIZIDE [Concomitant]
     Route: 065
     Dates: end: 20071026
  4. MULTI-VITAMINS [Concomitant]
     Indication: VITAMIN SUPPLEMENTATION
     Route: 065
     Dates: start: 20050101
  5. RANITIDINE HCL [Concomitant]
     Route: 048
     Dates: start: 20040101
  6. CITRACAL [Concomitant]
     Indication: OSTEOPOROSIS
     Route: 065
     Dates: start: 20040101
  7. LOVASTATIN [Concomitant]
     Route: 048
     Dates: start: 20040101
  8. VICODIN [Concomitant]
     Indication: PAIN
     Route: 065
     Dates: start: 20070813
  9. IMODIUM [Concomitant]
     Route: 065
     Dates: start: 20070806
  10. FLUOCINONIDE [Concomitant]
     Dosage: 0.05%
     Route: 061
     Dates: start: 20070920
  11. FLUOCINONIDE [Concomitant]
  12. FENTANYL [Concomitant]
     Indication: PAIN
     Route: 061
     Dates: start: 20071016, end: 20071022
  13. ALLOPURINOL [Concomitant]
     Route: 048
     Dates: start: 20071016
  14. ASPIRIN [Concomitant]
     Route: 065
     Dates: start: 20071016
  15. ADRIAMYCIN RDF [Concomitant]
     Indication: DRUG USE FOR UNKNOWN INDICATION
     Route: 065
     Dates: start: 20071015
  16. NEUPOGEN [Concomitant]
     Indication: DRUG USE FOR UNKNOWN INDICATION
     Dosage: 300 MCG/ML
     Route: 050
  17. LOPERAMIDE HYDROCHLORIDE [Concomitant]
     Indication: DRUG USE FOR UNKNOWN INDICATION
     Route: 048

REACTIONS (3)
  - ASTHENIA [None]
  - B-CELL LYMPHOMA [None]
  - HYPOTENSION [None]
